FAERS Safety Report 24726389 (Version 1)
Quarter: 2024Q4

REPORT INFORMATION
  Report Type: Spontaneous
  Country: AU (occurrence: AU)
  Receive Date: 20241212
  Receipt Date: 20241212
  Transmission Date: 20250115
  Serious: Yes (Hospitalization, Other)
  Sender: RANBAXY
  Company Number: AU-SUN PHARMACEUTICAL INDUSTRIES LTD-2024R1-482931

PATIENT
  Age: 63 Year
  Sex: Male

DRUGS (23)
  1. DOXORUBICIN [Suspect]
     Active Substance: DOXORUBICIN
     Indication: Diffuse large B-cell lymphoma
     Dosage: UNK (89.5 MILLIGRAM/SQUARE METRE; INTERVAL: 3 WEEK)
     Route: 042
     Dates: start: 20240814
  2. CC-99282 [Suspect]
     Active Substance: CC-99282
     Indication: Diffuse large B-cell lymphoma
     Dosage: UNK (0.4 MILLIGRAM;INTERVAL: 1 DAY)
     Route: 048
     Dates: start: 20240814
  3. ALLOPURINOL [Suspect]
     Active Substance: ALLOPURINOL
     Indication: Prophylaxis
     Dosage: UNK (300 MILLIGRAM; INTERVAL: 1 DAY)
     Route: 048
     Dates: start: 20240814, end: 20240821
  4. CYCLOPHOSPHAMIDE [Suspect]
     Active Substance: CYCLOPHOSPHAMIDE
     Indication: Diffuse large B-cell lymphoma
     Dosage: UNK (1324.5 MILLIGRAM/SQUARE METRE; INTERVAL: 3 WEEK)
     Route: 042
     Dates: start: 20240814
  5. BACTRIM DS [Suspect]
     Active Substance: SULFAMETHOXAZOLE\TRIMETHOPRIM
     Indication: Prophylaxis
     Dosage: UNK (INTERVAL: 1 DAY)
     Route: 048
     Dates: start: 20240814, end: 20240821
  6. PREDNISOLONE [Suspect]
     Active Substance: PREDNISOLONE
     Indication: Diffuse large B-cell lymphoma
     Dosage: UNK (100 MILLIGRAM; INTERVAL: 1 DAY)
     Route: 048
     Dates: start: 20240814
  7. RITUXIMAB [Suspect]
     Active Substance: RITUXIMAB
     Indication: Diffuse large B-cell lymphoma
     Dosage: UNK (375 MILLIGRAM/SQUARE METRE; INTERVAL: 3 WEEK)
     Route: 042
     Dates: start: 20240814
  8. VINCRISTINE [Suspect]
     Active Substance: VINCRISTINE
     Indication: Diffuse large B-cell lymphoma
     Dosage: UNK (2 MILLIGRAM/SQUARE METRE; INTERVAL: 3 WEEK)
     Route: 042
     Dates: start: 20240814
  9. POVIDONE-IODINE [Concomitant]
     Active Substance: POVIDONE-IODINE
     Indication: Oropharyngeal pain
     Dosage: UNK (120 MILLILITRE)
     Route: 048
     Dates: start: 20240820, end: 20240821
  10. LORATADINE [Concomitant]
     Active Substance: LORATADINE
     Indication: Pruritus
     Dosage: UNK (10 MILLIGRAM)
     Route: 048
     Dates: start: 20240819, end: 20240821
  11. HYDROCHLOROTHIAZIDE\TELMISARTAN [Concomitant]
     Active Substance: HYDROCHLOROTHIAZIDE\TELMISARTAN
     Indication: Hypertension
     Dosage: UNK (INTERVAL: 1 DAY)
     Route: 048
     Dates: start: 2020
  12. POLARAMINE [Concomitant]
     Active Substance: DEXCHLORPHENIRAMINE MALEATE
     Indication: Pruritus
     Dosage: UNK (2 MILLIGRAM)
     Route: 048
     Dates: start: 20240819, end: 20240821
  13. ACYCLOVIR [Concomitant]
     Active Substance: ACYCLOVIR
     Indication: Prophylaxis
     Dosage: UNK (200 MILLIGRAM; DOSE FORM: UNKNOWN; INTERVAL: 1 DAY)
     Route: 048
     Dates: start: 20240814
  14. HYDROCORTISONE [Concomitant]
     Active Substance: HYDROCORTISONE
     Indication: Product used for unknown indication
     Dosage: UNK (100 MILLIGRAM)
     Route: 042
     Dates: start: 20240814, end: 20240814
  15. IBUPROFEN [Concomitant]
     Active Substance: IBUPROFEN
     Indication: Pain
     Dosage: UNK (256 MILLIGRAM)
     Route: 048
     Dates: start: 202407
  16. LORATADINE [Concomitant]
     Active Substance: LORATADINE
     Indication: Product used for unknown indication
     Dosage: UNK (10 MILLIGRAM; INTERVAL: 1 MONTH)
     Route: 048
     Dates: start: 20240814, end: 20240821
  17. OXYCODONE [Concomitant]
     Active Substance: OXYCODONE
     Indication: Pain
     Dosage: UNK (5 MILLIGRAM)
     Route: 048
     Dates: start: 2024, end: 20240821
  18. ACETAMINOPHEN [Concomitant]
     Active Substance: ACETAMINOPHEN
     Indication: Pain
     Dosage: UNK (5 MILLIGRAM)
     Route: 048
     Dates: start: 202407
  19. ACETAMINOPHEN [Concomitant]
     Active Substance: ACETAMINOPHEN
     Dosage: UNK (100 MILLIGRAM; INTERVAL: 1 MONTH)
     Route: 048
     Dates: start: 20240814
  20. RIVAROXABAN [Concomitant]
     Active Substance: RIVAROXABAN
     Indication: Prophylaxis
     Dosage: UNK (10 MILLIGRAM; DOSE FORM: UNKNOWN; INTERVAL: 1 DAY)
     Route: 048
     Dates: start: 20240814
  21. ROXITHROMYCIN [Concomitant]
     Active Substance: ROXITHROMYCIN
     Indication: Product used for unknown indication
     Dosage: UNK (150 MILLIGRAM; DOSE FORM: UNKNOWN; INTERVAL: 1 DAY)
     Route: 048
     Dates: start: 2017
  22. TADALAFIL [Concomitant]
     Active Substance: TADALAFIL
     Indication: Prostatectomy
     Dosage: UNK (5 MILLIGRAM; DOSE FORM: UNKNOWN; INTERVAL: 1 WEEK)
     Route: 048
     Dates: start: 2021
  23. VIAGRA [Concomitant]
     Active Substance: SILDENAFIL CITRATE
     Indication: Prostatic disorder
     Dosage: UNK (20 MILLIGRAM; DOSE FORM: UNKNOWN; INTERVAL: 2 WEEK)
     Route: 048
     Dates: start: 2021

REACTIONS (3)
  - Febrile neutropenia [Recovered/Resolved]
  - Presyncope [Recovered/Resolved]
  - Pruritus [Recovered/Resolved]

NARRATIVE: CASE EVENT DATE: 20240821
